FAERS Safety Report 9672438 (Version 1)
Quarter: 2013Q4

REPORT INFORMATION
  Report Type: Spontaneous
  Country: US (occurrence: US)
  Receive Date: 20131106
  Receipt Date: 20131106
  Transmission Date: 20140711
  Serious: No
  Sender: FDA-Public Use
  Company Number: US-009507513-1310USA011820

PATIENT
  Sex: 0
  Weight: 45.81 kg

DRUGS (3)
  1. NEXPLANON [Suspect]
     Dosage: 1 DF, UNK
     Route: 059
     Dates: start: 20130923, end: 20130923
  2. NEXPLANON [Suspect]
     Dosage: UNK
     Dates: start: 20130923
  3. IMPLANON [Concomitant]
     Dosage: UNK
     Route: 059
     Dates: end: 20130923

REACTIONS (2)
  - Device difficult to use [Unknown]
  - No adverse event [Unknown]
